FAERS Safety Report 6645054-7 (Version None)
Quarter: 2010Q1

REPORT INFORMATION
  Report Type: 
  Country: None (occurrence: None)
  Receive Date: 20100317
  Receipt Date: 20100308
  Transmission Date: 20100710
  Serious: Yes (Other)
  Sender: FDA-Public Use
  Company Number: DSA_42741_2010

PATIENT
  Sex: Female

DRUGS (3)
  1. XENAZINE [Suspect]
     Indication: DRUG USE FOR UNKNOWN INDICATION
     Dosage: 25 MG QD ORAL, 12.5 MG 1/2 TABLET BID ORAL
     Route: 048
     Dates: end: 20100127
  2. XENAZINE [Suspect]
     Indication: DRUG USE FOR UNKNOWN INDICATION
     Dosage: 25 MG QD ORAL, 12.5 MG 1/2 TABLET BID ORAL
     Route: 048
     Dates: start: 20100128
  3. PROZAC / 00724401/ [Concomitant]

REACTIONS (3)
  - ANXIETY [None]
  - RESTLESSNESS [None]
  - SUICIDAL IDEATION [None]
